FAERS Safety Report 5806729-2 (Version None)
Quarter: 2008Q3

REPORT INFORMATION
  Report Type: 
  Country: None (occurrence: None)
  Receive Date: 20080709
  Receipt Date: 20080709
  Transmission Date: 20090109
  Serious: Yes (Life-Threatening, Hospitalization)
  Sender: FDA-Public Use
  Company Number: None

PATIENT
  Age: 29 Year
  Sex: Female
  Weight: 55.3388 kg

DRUGS (1)
  1. LAMICTAL [Suspect]
     Indication: EPILEPSY
     Dosage: 25 MG TABLET 2X A DAY PO
     Route: 048
     Dates: start: 20080501, end: 20080529

REACTIONS (17)
  - ASTHENIA [None]
  - BURNING SENSATION [None]
  - CAUSTIC INJURY [None]
  - CHEILITIS [None]
  - DRY SKIN [None]
  - EYELID MARGIN CRUSTING [None]
  - GLOSSODYNIA [None]
  - HYPOPHAGIA [None]
  - INSOMNIA [None]
  - LIP HAEMORRHAGE [None]
  - LIP PAIN [None]
  - LIP SWELLING [None]
  - SKIN EXFOLIATION [None]
  - STEVENS-JOHNSON SYNDROME [None]
  - STOMATITIS [None]
  - URINARY TRACT INFECTION [None]
  - VULVOVAGINAL DISCOMFORT [None]
